FAERS Safety Report 4613471-2 (Version None)
Quarter: 2005Q1

REPORT INFORMATION
  Report Type: 
  Country: None (occurrence: None)
  Receive Date: 20050321
  Receipt Date: 20050309
  Transmission Date: 20050727
  Serious: Yes (Hospitalization)
  Sender: FDA-Public Use
  Company Number: US-BRISTOL-MYERS SQUIBB COMPANY-12891180

PATIENT
  Age: 78 Year
  Sex: Male
  Weight: 73 kg

DRUGS (18)
  1. COUMADIN [Suspect]
     Indication: ATRIAL FIBRILLATION
     Dosage: STARTED ABOUT 2 YRS AGO; DRUG STOPPED ON 10-FEB-2005; RESTARTED 5MG QD BEFORE DISCHARGE.
     Dates: start: 20030101
  2. ANTIHYPERTENSIVE [Suspect]
     Route: 048
     Dates: end: 20050121
  3. NORVASC [Concomitant]
  4. LISINOPRIL [Concomitant]
  5. COREG [Concomitant]
     Dosage: PREVIOUSLY ON 12MG BID FROM 1999 TO 2004, THEN CHANGED TO 19MG BID FOR 1 YEAR.
     Dates: start: 19990101
  6. FUROSEMIDE [Concomitant]
  7. CHONDROITIN SULFATE + GLUCOSAMINE [Concomitant]
  8. COENZYME Q10 [Concomitant]
     Dosage: 1 TABLET FOR 5 YEARS
  9. MULTI-VITAMIN [Concomitant]
  10. BETOPTIC [Concomitant]
     Dosage: LEFT EYE
     Route: 031
  11. LIPITOR [Concomitant]
  12. FOLIC ACID [Concomitant]
  13. VITAMIN B-12 [Concomitant]
  14. VITAMIN B6 [Concomitant]
  15. HUMALOG [Concomitant]
     Dosage: INSULIN DOSAGES ADJUSTED DAILY ACCORDING TO BLOOD SUGARS
     Route: 058
  16. HUMULIN N [Concomitant]
     Dosage: INSULIN DOSAGES ADJUSTED DAILY ACCORDING TO BLOOD SUGARS
     Route: 058
  17. REGULAR INSULIN [Concomitant]
     Dosage: INSULIN DOSAGES ADJUSTED DAILY ACCORDING TO BLOOD SUGARS
     Route: 058
  18. ASPIRIN [Concomitant]
     Route: 048

REACTIONS (3)
  - COLITIS [None]
  - INTERNATIONAL NORMALISED RATIO INCREASED [None]
  - THROMBOSIS [None]
